FAERS Safety Report 7272228-7 (Version None)
Quarter: 2011Q1

REPORT INFORMATION
  Report Type: 
  Country: None (occurrence: None)
  Receive Date: 20110131
  Receipt Date: 20110131
  Transmission Date: 20110831
  Serious: Yes (Other)
  Sender: FDA-Public Use
  Company Number: None

PATIENT
  Age: 61 Year
  Sex: Female
  Weight: 76.2043 kg

DRUGS (1)
  1. CIPROFLOXACIN HCL [Suspect]
     Indication: KIDNEY INFECTION
     Dosage: 1 TABLET TWICE PER DAY PO
     Route: 048
     Dates: start: 20110101, end: 20110104

REACTIONS (16)
  - PAIN [None]
  - HYPOAESTHESIA [None]
  - OEDEMA PERIPHERAL [None]
  - INFLUENZA LIKE ILLNESS [None]
  - INSOMNIA [None]
  - PYREXIA [None]
  - MIGRAINE [None]
  - DRY MOUTH [None]
  - NAUSEA [None]
  - PAIN IN JAW [None]
  - FLUSHING [None]
  - FATIGUE [None]
  - TOOTHACHE [None]
  - SWELLING FACE [None]
  - FEELING HOT [None]
  - PAIN IN EXTREMITY [None]
